FAERS Safety Report 23134531 (Version 1)
Quarter: 2023Q4

REPORT INFORMATION
  Report Type: Spontaneous
  Country: US (occurrence: US)
  Receive Date: 20231101
  Receipt Date: 20231101
  Transmission Date: 20240109
  Serious: No
  Sender: FDA-Public Use
  Company Number: US-TRIS PHARMA, INC.-23US011152

PATIENT

DRUGS (6)
  1. DEXMETHYLPHENIDATE HYDROCHLORIDE [Suspect]
     Active Substance: DEXMETHYLPHENIDATE HYDROCHLORIDE
     Indication: Attention deficit hyperactivity disorder
     Dosage: UNK, QID
  2. FOCALIN [Concomitant]
     Active Substance: DEXMETHYLPHENIDATE HYDROCHLORIDE
     Indication: Attention deficit hyperactivity disorder
     Dosage: 40 MILLIGRAM, QD
  3. DILAUDID [Concomitant]
     Active Substance: HYDROMORPHONE HYDROCHLORIDE
     Indication: Spinal cord injury
     Dosage: 1.699 MILLIGRAM, QD
  4. DILAUDID [Concomitant]
     Active Substance: HYDROMORPHONE HYDROCHLORIDE
     Indication: Vulvovaginal injury
     Dosage: 6 DOSAGE FORM (0.15 MG BOLUSES), Q 3 HR
  5. BUPIVACAINE [Concomitant]
     Active Substance: BUPIVACAINE
     Indication: Spinal cord injury
     Dosage: 5.097 MILLIGRAM, QD
  6. BUPIVACAINE [Concomitant]
     Active Substance: BUPIVACAINE
     Indication: Vulvovaginal injury
     Dosage: 6 DOSAGE FORM (0.450 MG BOLUSES), Q 3 HR

REACTIONS (1)
  - Insomnia [Unknown]
